FAERS Safety Report 8163640-2 (Version None)
Quarter: 2012Q1

REPORT INFORMATION
  Report Type: 
  Country: None (occurrence: None)
  Receive Date: 20120221
  Receipt Date: 20120208
  Transmission Date: 20120608
  Serious: Yes (Death, Hospitalization)
  Sender: FDA-Public Use
  Company Number: DSA_55136_2012

PATIENT
  Age: 64 Year
  Sex: Male

DRUGS (3)
  1. CISPLATIN [Suspect]
     Indication: OESOPHAGEAL SQUAMOUS CELL CARCINOMA STAGE IV
     Dosage: (130 MG/BODY ON DAYS 29-33; EVERY CYCLE)
  2. THERAPEUTIC RADIOPHARMACUETICALS (THERAPEUTIC RADIOPHARMACEUTICALS) [Suspect]
     Indication: OESOPHAGEAL SQUAMOUS CELL CARCINOMA
     Dosage: ((52 GY, 2 GY/FR, 5 GY/WEEK))
  3. FLUOROURACIL [Suspect]
     Indication: OESOPHAGEAL SQUAMOUS CELL CARCINOMA STAGE IV
     Dosage: (1300 MG/BODY ON DAYS 1-5; EVERY CYCLE)

REACTIONS (6)
  - MUCOSAL INFLAMMATION [None]
  - SKIN HYPERPIGMENTATION [None]
  - TOXICITY TO VARIOUS AGENTS [None]
  - DRUG LEVEL INCREASED [None]
  - DECREASED APPETITE [None]
  - RADIATION PNEUMONITIS [None]
